FAERS Safety Report 6755800-X (Version None)
Quarter: 2010Q2

REPORT INFORMATION
  Report Type: 
  Country: None (occurrence: None)
  Receive Date: 20100604
  Receipt Date: 20100602
  Transmission Date: 20101027
  Serious: Yes (Other)
  Sender: FDA-Public Use
  Company Number: US-WYE-H15444710

PATIENT

DRUGS (2)
  1. TEMSIROLIMUS [Suspect]
     Indication: GLIOBLASTOMA
     Route: 042
  2. NEXAVAR [Suspect]
     Indication: GLIOBLASTOMA
     Dosage: 200 TO 400 MG BID
     Route: 048

REACTIONS (1)
  - CEREBRAL ISCHAEMIA [None]
